FAERS Safety Report 23768665 (Version 1)
Quarter: 2024Q2

REPORT INFORMATION
  Report Type: Spontaneous
  Country: US (occurrence: None)
  Receive Date: 20240419
  Receipt Date: 20240419
  Transmission Date: 20240715
  Serious: Yes (Other)
  Sender: FDA-Public Use
  Company Number: None

PATIENT
  Age: 64 Year
  Sex: Male
  Weight: 105 kg

DRUGS (1)
  1. EYLEA HD [Suspect]
     Active Substance: AFLIBERCEPT
     Indication: Diabetic retinopathy
     Dosage: OTHER FREQUENCY : MONTHLY;?
     Route: 031
     Dates: start: 20240329

REACTIONS (3)
  - Retinal artery occlusion [None]
  - Retinal occlusive vasculitis [None]
  - Retinal ischaemia [None]

NARRATIVE: CASE EVENT DATE: 20240419
